FAERS Safety Report 8432066 (Version 3)
Quarter: 2014Q3

REPORT INFORMATION
  Report Type: Spontaneous
  Country: GB (occurrence: GB)
  Receive Date: 20120229
  Receipt Date: 20140729
  Transmission Date: 20150326
  Serious: Yes (Other)
  Sender: FDA-Public Use
  Company Number: GB-RANBAXY-2012RR-52879

PATIENT
  Age: 89 Year
  Sex: Female

DRUGS (4)
  1. FLUOXETINE [Suspect]
     Active Substance: FLUOXETINE\FLUOXETINE HYDROCHLORIDE
     Indication: PRODUCT USED FOR UNKNOWN INDICATION
     Dosage: 20 MG/DAY
     Route: 048
  2. TAZOBACTAM [Concomitant]
     Active Substance: TAZOBACTAM
     Indication: URINARY TRACT INFECTION
     Dosage: UNK
     Route: 042
  3. PIPERACILLIN [Concomitant]
     Active Substance: PIPERACILLIN
     Indication: URINARY TRACT INFECTION
     Dosage: UNK
     Route: 042
  4. CLARITHROMYCIN. [Interacting]
     Active Substance: CLARITHROMYCIN
     Indication: RESPIRATORY TRACT INFECTION
     Dosage: UNK
     Route: 048

REACTIONS (2)
  - Drug interaction [Recovered/Resolved]
  - Serotonin syndrome [Recovering/Resolving]
